FAERS Safety Report 8764375 (Version 4)
Quarter: 2014Q1

REPORT INFORMATION
  Report Type: Report from Study
  Country: JP (occurrence: JP)
  Receive Date: 20120831
  Receipt Date: 20140106
  Transmission Date: 20141002
  Serious: Yes (Hospitalization, Other)
  Sender: FDA-Public Use
  Company Number: PHHY2012JP073575

PATIENT
  Age: 41 Year
  Sex: Male
  Weight: 50 kg

DRUGS (36)
  1. CERTICAN [Suspect]
     Indication: HEART TRANSPLANT
     Dosage: 1.5 MG, UNK
     Route: 048
     Dates: start: 20080723, end: 20110116
  2. CERTICAN [Interacting]
     Dosage: 1.5 MG, DAILY
     Route: 048
     Dates: start: 20110124
  3. CERTICAN [Interacting]
     Dosage: 1.5 MG, DAILY
     Route: 048
     Dates: start: 20120124
  4. CLARITHROMYCIN [Interacting]
     Route: 048
     Dates: start: 20110117, end: 20110123
  5. PROGRAF [Interacting]
     Indication: HEART TRANSPLANT
     Dosage: 3 MG, UNK
     Route: 048
  6. PROGRAF [Interacting]
     Dosage: 3 MG, UNK
     Route: 048
     Dates: start: 20080723, end: 20080728
  7. PROGRAF [Interacting]
     Dosage: 2 MG, UNK
     Route: 048
     Dates: start: 20080728, end: 20080804
  8. PROGRAF [Interacting]
     Dosage: 3 MG, UNK
     Route: 048
     Dates: start: 20080805, end: 20080919
  9. PROGRAF [Interacting]
     Dosage: 4 MG, UNK
     Route: 048
     Dates: start: 20080919
  10. PROGRAF [Interacting]
     Dosage: 7 MG, UNK
     Route: 048
     Dates: start: 20100727, end: 20110123
  11. PROGRAF [Interacting]
     Dosage: 4 MG, UNK
     Route: 048
     Dates: start: 20110125, end: 20110127
  12. PROGRAF [Interacting]
     Dosage: 5 MG, UNK
     Route: 048
     Dates: start: 20110128, end: 20110128
  13. PROGRAF [Interacting]
     Dosage: 6 MG, UNK
     Route: 048
     Dates: start: 20110129, end: 20110130
  14. PROGRAF [Interacting]
     Dosage: 7 MG, UNK
     Route: 048
     Dates: start: 20110131
  15. CELLCEPT [Concomitant]
     Indication: HEART TRANSPLANT
     Dosage: 2000 MG, UNK
     Route: 048
     Dates: end: 20080722
  16. PREDONINE [Concomitant]
     Indication: HEART TRANSPLANT
     Dosage: 5 MG, UNK
     Route: 048
     Dates: end: 20110123
  17. MEVALOTIN [Concomitant]
     Dosage: 20 MG, UNK
     Route: 048
  18. MEVALOTIN [Concomitant]
     Dosage: 20 MG, UNK
     Route: 048
  19. GASTER D [Concomitant]
     Dosage: 40 MG, UNK
     Route: 048
     Dates: end: 20110123
  20. RENIVACE [Concomitant]
     Dosage: 5 MG, UNK
     Route: 048
  21. RENIVACE [Concomitant]
     Dosage: 5 MG, UNK
     Route: 048
  22. RENIVACE [Concomitant]
     Dosage: 10 MG, UNK
     Route: 048
     Dates: start: 201007
  23. ACTONEL [Concomitant]
     Dosage: 2.5 MG, UNK
     Route: 048
     Dates: start: 201007, end: 20110123
  24. BAYASPIRIN [Concomitant]
     Dosage: 100 MG, UNK
     Route: 048
  25. BAYASPIRIN [Concomitant]
     Dosage: 100 MG, UNK
     Route: 048
  26. ASPARA-CA [Concomitant]
     Dosage: 800 MG, UNK
     Route: 048
  27. ASPARA-CA [Concomitant]
     Dosage: 800 MG, UNK
     Route: 048
  28. ALFAROL [Concomitant]
     Dosage: 1 UG, UNK
     Route: 048
     Dates: end: 20110123
  29. CINAL [Concomitant]
     Dosage: 800 MG, UNK
     Route: 048
  30. CINAL [Concomitant]
     Dosage: 800 MG, UNK
     Route: 048
  31. BAKTAR [Concomitant]
     Route: 048
     Dates: end: 20110123
  32. JUVELA [Concomitant]
     Dosage: 200 MG, UNK
     Route: 048
  33. JUVELA [Concomitant]
     Dosage: 200 MG, UNK
     Route: 048
  34. FLORID [Concomitant]
     Route: 048
     Dates: end: 20110123
  35. VALIXA [Concomitant]
  36. GRAN [Concomitant]
     Route: 058

REACTIONS (10)
  - Renal failure [Recovered/Resolved]
  - Blood creatinine increased [Unknown]
  - Glomerular filtration rate decreased [Unknown]
  - Dehydration [Recovered/Resolved]
  - Drug interaction [Recovering/Resolving]
  - Immunosuppressant drug level increased [Recovering/Resolving]
  - Diarrhoea [Recovered/Resolved]
  - Decreased appetite [Recovering/Resolving]
  - Stomatitis [Recovered/Resolved]
  - Nausea [Recovering/Resolving]
